FAERS Safety Report 5779968-7 (Version None)
Quarter: 2008Q2

REPORT INFORMATION
  Report Type: 
  Country: None (occurrence: None)
  Receive Date: 20080620
  Receipt Date: 20080604
  Transmission Date: 20081010
  Serious: Yes (Hospitalization)
  Sender: FDA-Public Use
  Company Number: PHBS2008US04739

PATIENT
  Age: 16 Year
  Sex: Female

DRUGS (1)
  1. TRILEPTAL [Suspect]
     Indication: CONVULSION
     Dosage: 450 MG, BID

REACTIONS (18)
  - ABDOMINAL DISTENSION [None]
  - ABDOMINAL PAIN [None]
  - ANAEMIA [None]
  - ARTERIAL INSUFFICIENCY [None]
  - BILE DUCT STENOSIS [None]
  - BIOPSY [None]
  - CHOLANGITIS [None]
  - CHOLESTASIS [None]
  - FOCAL NODULAR HYPERPLASIA [None]
  - HEPATECTOMY [None]
  - HEPATIC ADENOMA [None]
  - HEPATIC FIBROSIS [None]
  - HEPATICOJEJUNOSTOMY [None]
  - LEUKOCYTOSIS [None]
  - PAIN [None]
  - PYREXIA [None]
  - TRANSAMINASES INCREASED [None]
  - VOMITING [None]
